FAERS Safety Report 10516003 (Version 3)
Quarter: 2014Q4

REPORT INFORMATION
  Report Type: Spontaneous
  Country: AT (occurrence: AT)
  Receive Date: 20141014
  Receipt Date: 20141209
  Transmission Date: 20150528
  Serious: Yes (Life-Threatening, Hospitalization)
  Sender: FDA-Public Use
  Company Number: AT-ASTRAZENECA-2014SE76845

PATIENT
  Age: 74 Year
  Sex: Female

DRUGS (39)
  1. SOLIAN [Suspect]
     Active Substance: AMISULPRIDE
     Route: 048
     Dates: start: 20140303
  2. CRESTOR [Concomitant]
     Active Substance: ROSUVASTATIN CALCIUM
     Route: 048
     Dates: start: 201402, end: 20140302
  3. ABILIFY [Concomitant]
     Active Substance: ARIPIPRAZOLE
     Dates: start: 20140218, end: 20140303
  4. TEMESTA [Concomitant]
     Active Substance: LORAZEPAM
     Route: 042
     Dates: start: 20140214, end: 20140215
  5. TEMESTA [Concomitant]
     Active Substance: LORAZEPAM
     Route: 048
     Dates: start: 20140220, end: 20140225
  6. THROMBO ASS [Concomitant]
     Active Substance: ASPIRIN
     Route: 048
     Dates: start: 201402
  7. NOVORAPID [Concomitant]
     Active Substance: INSULIN ASPART
     Route: 058
     Dates: start: 20140307, end: 20140307
  8. SOLIAN [Suspect]
     Active Substance: AMISULPRIDE
     Route: 048
     Dates: start: 20140410
  9. CONCOR [Concomitant]
     Active Substance: BISOPROLOL FUMARATE
     Route: 048
     Dates: start: 201402
  10. LOVENOX [Concomitant]
     Active Substance: ENOXAPARIN SODIUM
     Route: 058
     Dates: start: 201402, end: 20140213
  11. NOVORAPID [Concomitant]
     Active Substance: INSULIN ASPART
     Route: 058
     Dates: start: 20140309, end: 20140310
  12. SEROQUEL [Suspect]
     Active Substance: QUETIAPINE FUMARATE
     Route: 048
     Dates: start: 20140404, end: 20140406
  13. SEROQUEL [Suspect]
     Active Substance: QUETIAPINE FUMARATE
     Route: 048
     Dates: start: 20140407, end: 20140409
  14. SOLIAN [Suspect]
     Active Substance: AMISULPRIDE
     Route: 048
     Dates: start: 20140405, end: 20140409
  15. BERODUAL [Suspect]
     Active Substance: FENOTEROL HYDROBROMIDE\IPRATROPIUM BROMIDE
     Dosage: 4X6 GGT DAILY
     Route: 065
     Dates: start: 201402, end: 201403
  16. ARICEPT [Concomitant]
     Active Substance: DONEPEZIL HYDROCHLORIDE
     Route: 048
     Dates: start: 20140306
  17. PANTOLOC [Concomitant]
     Active Substance: PANTOPRAZOLE SODIUM
     Route: 048
     Dates: start: 201402, end: 201403
  18. LASIX [Concomitant]
     Active Substance: FUROSEMIDE
     Route: 042
     Dates: start: 20140307, end: 20140308
  19. SEROQUEL [Suspect]
     Active Substance: QUETIAPINE FUMARATE
     Route: 048
     Dates: start: 20140218, end: 20140226
  20. SOLIAN [Suspect]
     Active Substance: AMISULPRIDE
     Route: 048
     Dates: start: 20140304, end: 20140403
  21. TEMESTA [Concomitant]
     Active Substance: LORAZEPAM
     Route: 048
     Dates: start: 20140226
  22. NOVORAPID [Concomitant]
     Active Substance: INSULIN ASPART
     Route: 058
     Dates: start: 20140308, end: 20140308
  23. ABILIFY [Concomitant]
     Active Substance: ARIPIPRAZOLE
     Dates: start: 20140214, end: 20140214
  24. TEMESTA [Concomitant]
     Active Substance: LORAZEPAM
     Route: 042
     Dates: start: 20140213
  25. LOVENOX [Concomitant]
     Active Substance: ENOXAPARIN SODIUM
     Route: 058
     Dates: start: 20140214, end: 201403
  26. SOLIAN [Suspect]
     Active Substance: AMISULPRIDE
     Route: 048
     Dates: start: 20140404
  27. ABILIFY [Concomitant]
     Active Substance: ARIPIPRAZOLE
     Dates: start: 20140215, end: 20140217
  28. TEMESTA [Concomitant]
     Active Substance: LORAZEPAM
     Route: 042
     Dates: start: 20140216, end: 20140218
  29. NUBAIN [Concomitant]
     Active Substance: NALBUPHINE HYDROCHLORIDE
     Dosage: 1 VIAL DAILY
     Route: 058
     Dates: start: 20140226, end: 20140227
  30. SEROQUEL [Suspect]
     Active Substance: QUETIAPINE FUMARATE
     Route: 048
     Dates: start: 20140227, end: 20140403
  31. THIAMAZOL [Concomitant]
     Active Substance: METHIMAZOLE
     Dosage: 10 MG (MON, WED FRIDAY)
     Route: 048
     Dates: start: 201402
  32. NUBAIN [Concomitant]
     Active Substance: NALBUPHINE HYDROCHLORIDE
     Dosage: 1 VIAL DAILY
     Route: 058
     Dates: start: 20140304
  33. NUBAIN [Concomitant]
     Active Substance: NALBUPHINE HYDROCHLORIDE
     Dosage: 1 VIAL DAILY
     Route: 058
     Dates: start: 20140307
  34. GLUCOPHAGE [Concomitant]
     Active Substance: METFORMIN HYDROCHLORIDE
     Route: 048
     Dates: start: 20140218, end: 20140302
  35. TEMESTA [Concomitant]
     Active Substance: LORAZEPAM
     Route: 048
     Dates: start: 20140219
  36. MONOKET [Concomitant]
     Active Substance: ISOSORBIDE MONONITRATE
     Route: 048
     Dates: start: 201402, end: 201403
  37. UNASYN [Concomitant]
     Active Substance: AMPICILLIN SODIUM\SULBACTAM SODIUM
     Route: 042
     Dates: start: 20140302
  38. NOVORAPID [Concomitant]
     Active Substance: INSULIN ASPART
     Route: 058
     Dates: start: 20140216, end: 20140217
  39. NOVORAPID [Concomitant]
     Active Substance: INSULIN ASPART
     Route: 058
     Dates: start: 20140304, end: 20140305

REACTIONS (1)
  - Myocardial infarction [Recovered/Resolved]

NARRATIVE: CASE EVENT DATE: 20140310
